FAERS Safety Report 9785355 (Version 1)
Quarter: 2013Q4

REPORT INFORMATION
  Report Type: Spontaneous
  Country: US (occurrence: US)
  Receive Date: 20131227
  Receipt Date: 20131227
  Transmission Date: 20140711
  Serious: Yes (Death, Other)
  Sender: FDA-Public Use
  Company Number: US-JNJFOC-20131211493

PATIENT
  Sex: Female

DRUGS (18)
  1. DOXORUBICIN [Suspect]
     Indication: BREAST CANCER
     Dosage: 4 CYCLES
     Route: 042
  2. DOXORUBICIN [Suspect]
     Indication: BREAST CANCER
     Dosage: 6 CYCLES
     Route: 042
  3. CYCLOPHOSPHAMIDE [Suspect]
     Indication: BREAST CANCER
     Dosage: 4 CYCLES
     Route: 042
  4. CYCLOPHOSPHAMIDE [Suspect]
     Indication: BREAST CANCER
     Dosage: 6 CYCLES
     Route: 042
  5. BEVACIZUMAB [Suspect]
     Indication: BREAST CANCER
     Dosage: 6 CYCLES
     Route: 042
  6. BEVACIZUMAB [Suspect]
     Indication: BREAST CANCER
     Dosage: 4 CYCLES
     Route: 042
  7. BEVACIZUMAB [Suspect]
     Indication: BREAST CANCER
     Dosage: 4 CYCLES
     Route: 042
  8. BEVACIZUMAB [Suspect]
     Indication: BREAST CANCER
     Dosage: MAINTENANCE DOSE FOR 52 WEEKS TOTAL
     Route: 042
  9. DOCETAXEL [Suspect]
     Indication: BREAST CANCER
     Dosage: 4 CYCLES
     Route: 042
  10. DOCETAXEL [Suspect]
     Indication: BREAST CANCER
     Dosage: 6 CYCLES
     Route: 042
  11. GRANULOCYTE COLONY-STIMULATING FACTOR NOS [Concomitant]
     Indication: PROPHYLAXIS
     Dosage: 24 HOURS AFTER CHEMOTHERAPY
     Route: 065
  12. PEGFILGRASTIM [Concomitant]
     Indication: PROPHYLAXIS
     Dosage: 24 HOURS AFTER CHEMOTHERAPY
     Route: 065
  13. FILGRASTIM [Concomitant]
     Indication: PROPHYLAXIS
     Dosage: 24 HOURS AFTER CHEMOTHERAPY
     Route: 065
  14. SARGRAMOSTIM [Concomitant]
     Indication: PROPHYLAXIS
     Dosage: 24 HOURS AFTER CHEMOTHERAPY
     Route: 065
  15. DEXAMETHASONE [Concomitant]
     Indication: PREMEDICATION
     Dosage: 12 HOUR AFTER DOCETAXEL
     Route: 048
  16. DEXAMETHASONE [Concomitant]
     Indication: PREMEDICATION
     Dosage: 12 HOUR BEFORE DOCETAXEL
     Route: 048
  17. DEXAMETHASONE [Concomitant]
     Indication: PREMEDICATION
     Dosage: JUST BEFORE DOCETAXEL
     Route: 042
  18. ANTIEMETICS NOS [Concomitant]
     Indication: PROPHYLAXIS
     Route: 065

REACTIONS (29)
  - Colitis [Fatal]
  - Pseudomonal sepsis [Fatal]
  - Cardiac failure congestive [Unknown]
  - Febrile neutropenia [Unknown]
  - Breast cancer recurrent [Unknown]
  - Breast cancer recurrent [Unknown]
  - Neoplasm malignant [Unknown]
  - Neoplasm malignant [Unknown]
  - Ejection fraction decreased [Unknown]
  - Cardiomyopathy [Unknown]
  - Cardiac disorder [Unknown]
  - Neutropenia [Unknown]
  - Leukopenia [Unknown]
  - Thrombocytopenia [Unknown]
  - Abdominal pain [Unknown]
  - Diarrhoea [Unknown]
  - Mucosal inflammation [Unknown]
  - Nausea [Unknown]
  - Fatigue [Unknown]
  - Dehydration [Unknown]
  - Arthralgia [Unknown]
  - Headache [Unknown]
  - Palmar-plantar erythrodysaesthesia syndrome [Unknown]
  - Hypertension [Unknown]
  - Adverse drug reaction [Unknown]
  - Ejection fraction [Unknown]
  - Toxicity to various agents [Unknown]
  - Oedema peripheral [Unknown]
  - Oedema [Unknown]
